FAERS Safety Report 14292971 (Version 2)
Quarter: 2018Q1

REPORT INFORMATION
  Report Type: Spontaneous
  Country: CA (occurrence: CA)
  Receive Date: 20171215
  Receipt Date: 20180212
  Transmission Date: 20180509
  Serious: Yes (Other)
  Sender: FDA-Public Use
  Company Number: CA-PFIZER INC-2017516241

PATIENT
  Age: 66 Year
  Sex: Male

DRUGS (6)
  1. MEDROL [Concomitant]
     Active Substance: METHYLPREDNISOLONE
     Dosage: UNK
     Route: 065
     Dates: start: 20171023
  2. METHOTREXATE SODIUM. [Suspect]
     Active Substance: METHOTREXATE SODIUM
     Indication: RHEUMATOID ARTHRITIS
     Dosage: UNK
     Route: 058
  3. XELJANZ [Suspect]
     Active Substance: TOFACITINIB CITRATE
     Indication: RHEUMATOID ARTHRITIS
     Dosage: 5 MG, 2X/DAY
     Route: 048
     Dates: start: 20171024
  4. TURMERIC [Concomitant]
     Active Substance: HERBALS\TURMERIC
     Dosage: UNK
  5. AZITHROMYCIN ANHYDROUS. [Concomitant]
     Active Substance: AZITHROMYCIN ANHYDROUS
     Dosage: 5 DAYS COURSE (UNKNOWN DOSE)
     Route: 065
     Dates: start: 2017, end: 2017
  6. GINGER. [Concomitant]
     Active Substance: GINGER
     Dosage: UNK

REACTIONS (12)
  - Back pain [Not Recovered/Not Resolved]
  - Oedema peripheral [Unknown]
  - Fatigue [Recovered/Resolved]
  - Arthralgia [Unknown]
  - Pain [Unknown]
  - Varicose vein [Unknown]
  - Road traffic accident [Unknown]
  - Chromaturia [Recovered/Resolved]
  - Abdominal tenderness [Unknown]
  - Vein rupture [Unknown]
  - Diarrhoea [Recovered/Resolved]
  - Cardiac failure [Unknown]

NARRATIVE: CASE EVENT DATE: 2017
